FAERS Safety Report 7476292-1 (Version None)
Quarter: 2011Q2

REPORT INFORMATION
  Report Type: 
  Country: None (occurrence: None)
  Receive Date: 20110510
  Receipt Date: 20110510
  Transmission Date: 20111010
  Serious: Yes (Other)
  Sender: FDA-Public Use
  Company Number: None

PATIENT
  Age: 87 Year
  Sex: Female
  Weight: 67.1324 kg

DRUGS (6)
  1. ISOSORBIDE DINITRATE [Concomitant]
  2. ATIVAN [Suspect]
     Indication: RESTLESSNESS
     Dosage: .5 MG
     Dates: start: 20101217
  3. THEOPHILIN [Concomitant]
  4. ASPIRIN [Concomitant]
  5. ATIVAN [Suspect]
     Indication: AGITATION
     Dosage: .5 MG
     Dates: start: 20101217
  6. PLAVIX [Concomitant]

REACTIONS (2)
  - AGGRESSION [None]
  - ABNORMAL BEHAVIOUR [None]
